FAERS Safety Report 7201506-2 (Version None)
Quarter: 2010Q4

REPORT INFORMATION
  Report Type: 
  Country: None (occurrence: None)
  Receive Date: 20101229
  Receipt Date: 20101227
  Transmission Date: 20110411
  Serious: Yes (Life-Threatening)
  Sender: FDA-Public Use
  Company Number: IT-US-EMD SERONO, INC.-7030979

PATIENT
  Age: 32 Year
  Sex: Female

DRUGS (2)
  1. RECOMBINANT FOLLICLE STIMULATING HORMONE (RFSH) [Suspect]
     Indication: OVULATION INDUCTION
  2. HUMAN CHORIONIC GONADOTROPHIN [Concomitant]
     Indication: OVULATION INDUCTION

REACTIONS (6)
  - ABDOMINAL INFECTION [None]
  - HAEMOLYTIC URAEMIC SYNDROME [None]
  - HYDROTHORAX [None]
  - MULTI-ORGAN FAILURE [None]
  - OVARIAN HYPERSTIMULATION SYNDROME [None]
  - OVARIAN NECROSIS [None]
